FAERS Safety Report 7265732-9 (Version None)
Quarter: 2011Q1

REPORT INFORMATION
  Report Type: 
  Country: None (occurrence: None)
  Receive Date: 20110131
  Receipt Date: 20110120
  Transmission Date: 20110831
  Serious: Yes (Life-Threatening, Hospitalization)
  Sender: FDA-Public Use
  Company Number: ES-ELI_LILLY_AND_COMPANY-ES201101005133

PATIENT
  Age: 57 Year
  Sex: Female

DRUGS (6)
  1. ADOLONTA [Concomitant]
     Dosage: 150 MG, DAILY (1/D)
     Route: 048
  2. DEPRAX [Concomitant]
     Dosage: 100 MG, DAILY (1/D)
     Route: 048
  3. ENANTYUM [Concomitant]
     Dosage: UNK, DAILY (1/D)
     Route: 048
  4. LORAZEPAM [Concomitant]
     Dosage: 2 MG, DAILY (1/D)
     Route: 048
  5. CYMBALTA [Suspect]
     Dosage: 60 MG, DAILY (1/D)
     Route: 048
  6. LYRICA [Concomitant]
     Dosage: 150 MG, DAILY (1/D)

REACTIONS (5)
  - ELECTROCARDIOGRAM QT PROLONGED [None]
  - CARDIAC ARREST [None]
  - CORONARY ARTERY OCCLUSION [None]
  - MYOCARDIAL INFARCTION [None]
  - VENTRICULAR FIBRILLATION [None]
